FAERS Safety Report 21670859 (Version 1)
Quarter: 2022Q4

REPORT INFORMATION
  Report Type: Spontaneous
  Country: CN (occurrence: CN)
  Receive Date: 20221202
  Receipt Date: 20221202
  Transmission Date: 20230113
  Serious: Yes (Other)
  Sender: FDA-Public Use
  Company Number: None

PATIENT
  Age: 78 Year
  Sex: Female
  Weight: 50 kg

DRUGS (6)
  1. CYCLOPHOSPHAMIDE [Suspect]
     Active Substance: CYCLOPHOSPHAMIDE
     Indication: Non-Hodgkin^s lymphoma
     Dosage: 0.6 G, QD, DILUTED IN 250 ML OF SODIUM CHLORIDE
     Route: 041
     Dates: start: 20221030, end: 20221030
  2. SODIUM CHLORIDE [Suspect]
     Active Substance: SODIUM CHLORIDE
     Indication: Medication dilution
     Dosage: 250 ML, QD, USED TO DILUTE 0.6G OF CYCLOPHOSPHAMIDE
     Route: 041
     Dates: start: 20221030, end: 20221030
  3. SODIUM CHLORIDE [Suspect]
     Active Substance: SODIUM CHLORIDE
     Dosage: 100 ML, QD, USED TO DILUTE 1.5 MG OF VINCRISTINE SULFATE
     Route: 041
     Dates: start: 20221030, end: 20221030
  4. SODIUM CHLORIDE [Suspect]
     Active Substance: SODIUM CHLORIDE
     Dosage: 250 ML, QD, USED TO DILUTE 70MG EPIRUBICIN HYDROCHLORIDE
     Route: 041
     Dates: start: 20221030, end: 20221030
  5. EPIRUBICIN HYDROCHLORIDE [Suspect]
     Active Substance: EPIRUBICIN HYDROCHLORIDE
     Indication: Non-Hodgkin^s lymphoma
     Dosage: 70 MG, QD, DILUTED IN 250 ML OF SODIUM CHLORIDE
     Route: 041
     Dates: start: 20221030, end: 20221030
  6. VINCRISTINE SULFATE [Suspect]
     Active Substance: VINCRISTINE SULFATE
     Indication: Non-Hodgkin^s lymphoma
     Dosage: 1.5 MG, QD, DILUTED IN 100ML OF SODIUM CHLORIDE
     Route: 041
     Dates: start: 20221030, end: 20221030

REACTIONS (1)
  - Myelosuppression [Recovering/Resolving]

NARRATIVE: CASE EVENT DATE: 20221112
